FAERS Safety Report 6608652-2 (Version None)
Quarter: 2010Q1

REPORT INFORMATION
  Report Type: 
  Country: None (occurrence: None)
  Receive Date: 20100226
  Receipt Date: 20100226
  Transmission Date: 20100710
  Serious: No
  Sender: FDA-Public Use
  Company Number: None

PATIENT
  Age: 41 Year
  Sex: Male
  Weight: 81.1939 kg

DRUGS (1)
  1. HALOPERIDOL DECANOATE [Suspect]
     Dosage: 100MG IM
     Route: 030

REACTIONS (1)
  - RASH ERYTHEMATOUS [None]
